FAERS Safety Report 8991886 (Version 1)
Quarter: 2012Q4

REPORT INFORMATION
  Report Type: Report from Study
  Country: CA (occurrence: CA)
  Receive Date: 20121231
  Receipt Date: 20121231
  Transmission Date: 20130627
  Serious: Yes (Life-Threatening, Hospitalization, Other)
  Sender: FDA-Public Use
  Company Number: CA-ROCHE-1172382

PATIENT
  Age: 75 Year
  Sex: Male
  Weight: 109 kg

DRUGS (8)
  1. OMALIZUMAB [Suspect]
     Indication: ASTHMA
     Route: 058
     Dates: start: 20061117, end: 20070418
  2. OMALIZUMAB [Suspect]
     Route: 058
     Dates: start: 20071031
  3. OMALIZUMAB [Suspect]
     Route: 058
     Dates: start: 20071203
  4. OMALIZUMAB [Suspect]
     Route: 058
     Dates: start: 20090817
  5. VENTOLIN [Concomitant]
  6. ATROVENT [Concomitant]
  7. SYMBICORT [Concomitant]
  8. ADVAIR [Concomitant]

REACTIONS (30)
  - Lung neoplasm malignant [Unknown]
  - Prostate cancer [Unknown]
  - Respiratory distress [Unknown]
  - Chronic obstructive pulmonary disease [Unknown]
  - Cardiac failure congestive [Unknown]
  - Asthma [Unknown]
  - Malaise [Unknown]
  - Cough [Unknown]
  - Pulmonary embolism [Unknown]
  - Cardiac disorder [Unknown]
  - Atrial fibrillation [Unknown]
  - Aortic stenosis [Unknown]
  - Neutropenia [Unknown]
  - Tachypnoea [Unknown]
  - Bronchitis [Unknown]
  - Atelectasis [Unknown]
  - Granuloma [Unknown]
  - Lower respiratory tract infection [Unknown]
  - Syncope [Unknown]
  - Blood pressure increased [Unknown]
  - Productive cough [Unknown]
  - White blood cell count increased [Unknown]
  - Stress [Unknown]
  - Rhinorrhoea [Unknown]
  - Vomiting [Unknown]
  - Pyrexia [Unknown]
  - Nasopharyngitis [Unknown]
  - Dizziness [Unknown]
  - Nausea [Unknown]
  - Headache [Unknown]
